FAERS Safety Report 6396313-7 (Version None)
Quarter: 2009Q4

REPORT INFORMATION
  Report Type: 
  Country: None (occurrence: None)
  Receive Date: 20091012
  Receipt Date: 20070525
  Transmission Date: 20100525
  Serious: Yes (Hospitalization, Other)
  Sender: FDA-Public Use
  Company Number: US-ASTRAZENECA-2006UW22041

PATIENT
  Age: 437 Month
  Sex: Female
  Weight: 79.4 kg

DRUGS (15)
  1. SEROQUEL [Suspect]
     Indication: BIPOLAR DISORDER
     Route: 048
     Dates: start: 19980101
  2. SEROQUEL [Suspect]
     Indication: DEPRESSION
     Route: 048
     Dates: start: 19980101
  3. SEROQUEL [Suspect]
     Indication: SCHIZOPHRENIA
     Route: 048
     Dates: start: 19980101
  4. SEROQUEL [Suspect]
     Route: 048
     Dates: start: 19980101
  5. SEROQUEL [Suspect]
     Route: 048
     Dates: start: 19980101
  6. SEROQUEL [Suspect]
     Route: 048
     Dates: start: 19980101
  7. SEROQUEL [Suspect]
     Dosage: 50-500 MG
     Route: 048
     Dates: start: 19990204
  8. SEROQUEL [Suspect]
     Dosage: 50-500 MG
     Route: 048
     Dates: start: 19990204
  9. SEROQUEL [Suspect]
     Dosage: 50-500 MG
     Route: 048
     Dates: start: 19990204
  10. GEODON [Concomitant]
     Dates: start: 20010101
  11. HALDOL [Concomitant]
     Dates: start: 20010101
  12. RISPERDAL [Concomitant]
     Dates: start: 19990101
  13. ZOLOFT [Concomitant]
     Dates: start: 20010801
  14. ZOLOFT [Concomitant]
     Dosage: 100 MG, HALF IN AM
  15. LITHIUM [Concomitant]
     Dosage: 900-1200 MG
     Dates: start: 19990204

REACTIONS (13)
  - DIABETES MELLITUS [None]
  - ENDOMETRIOSIS [None]
  - HYDRONEPHROSIS [None]
  - HYPERTENSION [None]
  - INTESTINAL OBSTRUCTION [None]
  - MYOMECTOMY [None]
  - NEPHROSTOMY [None]
  - RENAL ATROPHY [None]
  - RENAL FAILURE [None]
  - RENAL FAILURE CHRONIC [None]
  - TYPE 2 DIABETES MELLITUS [None]
  - URETERIC OBSTRUCTION [None]
  - UTERINE LEIOMYOMA [None]
